FAERS Safety Report 10005186 (Version 1)
Quarter: 2014Q1

REPORT INFORMATION
  Report Type: Spontaneous
  Country: FR (occurrence: FR)
  Receive Date: 20140312
  Receipt Date: 20140312
  Transmission Date: 20141002
  Serious: Yes (Other)
  Sender: FDA-Public Use
  Company Number: FR-TEVA-465992ISR

PATIENT
  Sex: Female

DRUGS (3)
  1. ESTREVA [Suspect]
     Indication: HIRSUTISM
     Dosage: 3 DOSAGE FORMS DAILY; 3 CONSECUTIVE DOSES PER DAY
  2. ESTREVA [Suspect]
     Indication: ACNE
  3. ANDROCUR [Suspect]
     Dosage: 1/2

REACTIONS (1)
  - Meningioma [Unknown]
